FAERS Safety Report 10939100 (Version 2)
Quarter: 2015Q1

REPORT INFORMATION
  Report Type: Spontaneous
  Country: US (occurrence: US)
  Receive Date: 20150321
  Receipt Date: 20150321
  Transmission Date: 20150721
  Serious: Yes (Death)
  Sender: FDA-Public Use
  Company Number: US-WATSON-2015-05295

PATIENT
  Age: 66 Year
  Sex: Female

DRUGS (9)
  1. TRAMADOL HYDROCHLORIDE (AELLC) [Suspect]
     Active Substance: TRAMADOL HYDROCHLORIDE
     Indication: SUICIDE ATTEMPT
     Dosage: UNKNOWN
     Route: 048
  2. BUPROPION HYDROCHLORIDE (ACTAVIS LABORATORIES FL) [Suspect]
     Active Substance: BUPROPION HYDROCHLORIDE
     Indication: SUICIDE ATTEMPT
     Dosage: UNKNOWN
     Route: 048
  3. GABAPENTIN (AELLC) [Suspect]
     Active Substance: GABAPENTIN
     Indication: SUICIDE ATTEMPT
     Dosage: UNKNOWN
     Route: 048
  4. DIPHENHYDRAMINE (WATSON LABORATORIES) [Suspect]
     Active Substance: DIPHENHYDRAMINE
     Indication: SUICIDE ATTEMPT
     Dosage: UNKNOWN
     Route: 048
  5. OXYCODONE HYDROCHLORIDE-APAP (WATSON LABORATORIES) [Suspect]
     Active Substance: ACETAMINOPHEN\OXYCODONE\OXYCODONE HYDROCHLORIDE
     Indication: SUICIDE ATTEMPT
     Dosage: UNKNOWN
     Route: 048
  6. LORAZEPAM (WATSON LABORATORIES) [Suspect]
     Active Substance: LORAZEPAM
     Indication: SUICIDE ATTEMPT
     Dosage: UNKNOWN
     Route: 048
  7. IBUPROFEN (AMALLC) [Suspect]
     Active Substance: IBUPROFEN
     Indication: SUICIDE ATTEMPT
     Dosage: UNKNOWN
     Route: 048
  8. OXYBUTYNIN (UNKNOWN) [Suspect]
     Active Substance: OXYBUTYNIN
     Indication: SUICIDE ATTEMPT
     Dosage: UNKNOWN
     Route: 048
  9. METFORMIN (UNKNOWN) [Suspect]
     Active Substance: METFORMIN HYDROCHLORIDE
     Indication: SUICIDE ATTEMPT
     Dosage: UNKNOWN
     Route: 048

REACTIONS (2)
  - Completed suicide [Fatal]
  - Toxicity to various agents [Fatal]
